FAERS Safety Report 11914165 (Version 2)
Quarter: 2016Q1

REPORT INFORMATION
  Report Type: Report from Study
  Country: US (occurrence: US)
  Receive Date: 20160113
  Receipt Date: 20160201
  Transmission Date: 20160526
  Serious: Yes (Death, Hospitalization, Other)
  Sender: FDA-Public Use
  Company Number: US-BAYER-2016-005670

PATIENT
  Age: 62 Year
  Sex: Male

DRUGS (1)
  1. NEXAVAR [Suspect]
     Active Substance: SORAFENIB
     Indication: HEPATOCELLULAR CARCINOMA
     Dosage: 400 MG, BID
     Route: 048
     Dates: start: 20151231, end: 20160106

REACTIONS (6)
  - Confusional state [None]
  - Dehydration [None]
  - Hypophagia [None]
  - Death [Fatal]
  - Haematuria [None]
  - Infection [None]

NARRATIVE: CASE EVENT DATE: 20160106
